FAERS Safety Report 4838495-1 (Version None)
Quarter: 2005Q4

REPORT INFORMATION
  Report Type: 
  Country: None (occurrence: None)
  Receive Date: 20051123
  Receipt Date: 20051109
  Transmission Date: 20060501
  Serious: Yes (Hospitalization)
  Sender: FDA-Public Use
  Company Number: CERZ-11055

PATIENT
  Age: 85 Year
  Sex: Male
  Weight: 86.1834 kg

DRUGS (16)
  1. CEREZYME [Suspect]
     Indication: GAUCHER'S DISEASE
     Dosage: 5600 UNITS Q4WKS IV
     Route: 042
     Dates: start: 20050412
  2. CEREZYME [Suspect]
     Indication: GAUCHER'S DISEASE
     Dosage: 2800 UNITS Q2WKS IV
     Route: 042
     Dates: start: 19970401, end: 20050401
  3. IMDUR [Concomitant]
  4. ASPIRIN [Concomitant]
  5. FELODIPINE [Concomitant]
  6. MONOPRIL [Concomitant]
  7. LOPRESSOR [Concomitant]
  8. AMBIEN [Concomitant]
  9. ZOLOFT [Concomitant]
  10. SINEMET [Concomitant]
  11. DEMADEX [Concomitant]
  12. ALBUTEROL [Concomitant]
  13. FOLIC ACID [Concomitant]
  14. K-DUR 10 [Concomitant]
  15. INSULIN [Concomitant]
  16. PROTONIX [Concomitant]

REACTIONS (5)
  - ATRIAL FIBRILLATION [None]
  - CARDIAC FAILURE CONGESTIVE [None]
  - CHEST PAIN [None]
  - CONDITION AGGRAVATED [None]
  - DYSPNOEA [None]
